FAERS Safety Report 23725876 (Version 1)
Quarter: 2024Q2

REPORT INFORMATION
  Report Type: Spontaneous
  Country: FR (occurrence: FR)
  Receive Date: 20240410
  Receipt Date: 20240410
  Transmission Date: 20240715
  Serious: Yes (Hospitalization, Other)
  Sender: FDA-Public Use
  Company Number: FR-CELLTRION INC.-2024FR008049

PATIENT

DRUGS (2)
  1. RITUXIMAB [Suspect]
     Active Substance: RITUXIMAB
     Indication: Chronic lymphocytic leukaemia
     Dosage: 500 MG/M2, QD
     Route: 042
     Dates: start: 20200610, end: 20201029
  2. BACTRIM [Concomitant]
     Active Substance: SULFAMETHOXAZOLE\TRIMETHOPRIM
     Indication: Antifungal prophylaxis
     Dosage: 3 DF, 1/WEEK
     Route: 048
     Dates: start: 20200610, end: 20210115

REACTIONS (2)
  - Agranulocytosis [Recovered/Resolved with Sequelae]
  - Neutropenia [Recovering/Resolving]

NARRATIVE: CASE EVENT DATE: 20201219
